FAERS Safety Report 10767278 (Version 1)
Quarter: 2015Q1

REPORT INFORMATION
  Report Type: Spontaneous
  Country: US (occurrence: US)
  Receive Date: 20150205
  Receipt Date: 20150205
  Transmission Date: 20150721
  Serious: No
  Sender: FDA-Public Use
  Company Number: US-GALDERMA-US14003196

PATIENT
  Sex: Female

DRUGS (2)
  1. EPIDUO [Suspect]
     Active Substance: ADAPALENE\BENZOYL PEROXIDE
     Dosage: 0.1% / 2.5%
     Route: 061
     Dates: start: 2011
  2. EPIDUO [Suspect]
     Active Substance: ADAPALENE\BENZOYL PEROXIDE
     Dosage: 0.1% / 2.5%
     Route: 061
     Dates: start: 201408

REACTIONS (3)
  - Acne [Unknown]
  - Drug administration error [Recovered/Resolved]
  - Emotional distress [Unknown]
